FAERS Safety Report 4940976-7 (Version None)
Quarter: 2006Q1

REPORT INFORMATION
  Report Type: 
  Country: None (occurrence: None)
  Receive Date: 20060313
  Receipt Date: 20060228
  Transmission Date: 20060701
  Serious: Yes (Other)
  Sender: FDA-Public Use
  Company Number: PHFR2006GB01005

PATIENT
  Sex: Female

DRUGS (1)
  1. FEMARA [Suspect]
     Route: 065

REACTIONS (2)
  - ARTHRALGIA [None]
  - BLOOD CREATININE INCREASED [None]
